FAERS Safety Report 18379222 (Version 1)
Quarter: 2020Q4

REPORT INFORMATION
  Report Type: Report from Study
  Country: US (occurrence: US)
  Receive Date: 20201014
  Receipt Date: 20201014
  Transmission Date: 20210114
  Serious: Yes (Death)
  Sender: FDA-Public Use
  Company Number: US-TAIHO ONCOLOGY  INC-EU-2020-03650

PATIENT
  Age: 63 Year
  Sex: Female
  Weight: 70.37 kg

DRUGS (19)
  1. ESZOPICLONE. [Concomitant]
     Active Substance: ESZOPICLONE
  2. AMLODIPINE [Concomitant]
     Active Substance: AMLODIPINE BESYLATE
  3. POTASSIUM [Concomitant]
     Active Substance: POTASSIUM
  4. ELIQUIS [Concomitant]
     Active Substance: APIXABAN
  5. DOXYCYCLINE. [Concomitant]
     Active Substance: DOXYCYCLINE
  6. ATENOLOL. [Concomitant]
     Active Substance: ATENOLOL
  7. LONSURF [Suspect]
     Active Substance: TIPIRACIL HYDROCHLORIDE\TRIFLURIDINE
     Indication: COLON CANCER
     Dosage: CURRENTLY ON CYCLE # 5
     Route: 048
  8. PROCHLORPERAZINE. [Concomitant]
     Active Substance: PROCHLORPERAZINE
  9. AMITRIPTYLINE [Concomitant]
     Active Substance: AMITRIPTYLINE
  10. NYSTATIN. [Concomitant]
     Active Substance: NYSTATIN
  11. ESTRASIOL [Concomitant]
  12. ATORVASTATIN [Concomitant]
     Active Substance: ATORVASTATIN
  13. OMEPRAZOLE. [Concomitant]
     Active Substance: OMEPRAZOLE
  14. FENOFIBRATE. [Concomitant]
     Active Substance: FENOFIBRATE
  15. TRAZODONE [Concomitant]
     Active Substance: TRAZODONE HYDROCHLORIDE
  16. CHLORTHALIDONE. [Concomitant]
     Active Substance: CHLORTHALIDONE
  17. LYRICA [Concomitant]
     Active Substance: PREGABALIN
  18. QUETIAPINE. [Concomitant]
     Active Substance: QUETIAPINE
  19. PERMARIN [Concomitant]

REACTIONS (1)
  - Death [Fatal]

NARRATIVE: CASE EVENT DATE: 2020
